FAERS Safety Report 24780273 (Version 1)
Quarter: 2024Q4

REPORT INFORMATION
  Report Type: Spontaneous
  Country: US (occurrence: US)
  Receive Date: 20241227
  Receipt Date: 20241227
  Transmission Date: 20250115
  Serious: No
  Sender: Haleon PLC
  Company Number: US-HALEON-2217205

PATIENT
  Age: 58 Year
  Sex: Female

DRUGS (1)
  1. ADVIL [Suspect]
     Active Substance: IBUPROFEN
     Indication: Pyrexia
     Dosage: EXPDATE:202712
     Dates: start: 20241214

REACTIONS (1)
  - Drug ineffective [Unknown]
